FAERS Safety Report 4723902-5 (Version None)
Quarter: 2005Q3

REPORT INFORMATION
  Report Type: 
  Country: None (occurrence: None)
  Receive Date: 20050722
  Receipt Date: 20050706
  Transmission Date: 20060218
  Serious: Yes (Hospitalization)
  Sender: FDA-Public Use
  Company Number: 2005PL000057

PATIENT
  Age: 21 Year
  Sex: Female
  Weight: 63 kg

DRUGS (6)
  1. IMURAN [Suspect]
     Indication: CROHN'S DISEASE
     Dosage: 2.5 MG/KG; PO
     Route: 048
     Dates: start: 20050425, end: 20050510
  2. PLACEBO (PO) [Suspect]
     Indication: CROHN'S DISEASE
     Dosage: 2.5 MG/KG; PO
     Route: 048
     Dates: start: 20050425, end: 20050510
  3. INFLIXIMAB, RECOMBINANT (IV) [Suspect]
     Indication: CROHN'S DISEASE
     Dosage: 5 MG;KG; IV
     Route: 042
     Dates: start: 20050425, end: 20050506
  4. PLACEBO - LYOPHILIZED POWDER (IV) [Suspect]
     Indication: CROHN'S DISEASE
     Dosage: 5 MG;KG; IV
     Route: 042
     Dates: start: 20050425, end: 20050506
  5. ASACOL [Concomitant]
  6. ORTHO TRI-CYCLEN [Concomitant]

REACTIONS (10)
  - CONDITION AGGRAVATED [None]
  - CROHN'S DISEASE [None]
  - DUODENITIS [None]
  - FATIGUE [None]
  - GASTRITIS [None]
  - HAEMATEMESIS [None]
  - HAEMATOCHEZIA [None]
  - HYPOVOLAEMIA [None]
  - MESENTERIC PANNICULITIS [None]
  - RED BLOOD CELL SEDIMENTATION RATE INCREASED [None]
